FAERS Safety Report 8766578 (Version 6)
Quarter: 2014Q1

REPORT INFORMATION
  Report Type: Report from Study
  Country: JP (occurrence: JP)
  Receive Date: 20120904
  Receipt Date: 20140310
  Transmission Date: 20141002
  Serious: No
  Sender: FDA-Public Use
  Company Number: JP-VERTEX PHARMACEUTICAL INC.-2012-020354

PATIENT
  Age: 59 Year
  Sex: Female

DRUGS (14)
  1. VX-950 (TELAPREVIR) [Suspect]
     Indication: CHRONIC HEPATITIS C
     Dosage: 2250 MG, QD
     Route: 048
     Dates: start: 20120724, end: 20120805
  2. VX-950 (TELAPREVIR) [Suspect]
     Dosage: 1500 MG, QD
     Route: 048
     Dates: start: 20120806, end: 20120819
  3. VX-950 (TELAPREVIR) [Suspect]
     Dosage: 1500 MG, QD
     Route: 048
     Dates: start: 20120827, end: 20121029
  4. PEGINTRON [Suspect]
     Indication: CHRONIC HEPATITIS C
     Dosage: 1.5 ?G/KG, QW
     Route: 058
     Dates: start: 20120724, end: 20120816
  5. PEGINTRON [Suspect]
     Dosage: 1.5 ?G/KG, QW
     Route: 058
     Dates: start: 20120827, end: 20130107
  6. REBETOL [Suspect]
     Indication: CHRONIC HEPATITIS C
     Dosage: 600 MG, QD
     Route: 048
     Dates: start: 20120724, end: 20120812
  7. REBETOL [Suspect]
     Dosage: 400 MG, QD
     Route: 048
     Dates: start: 20120813, end: 20120819
  8. REBETOL [Suspect]
     Dosage: 200 MG, QD
     Route: 048
     Dates: start: 20120827, end: 20130114
  9. ALLELOCK OD [Suspect]
     Indication: ADVERSE EVENT
     Dosage: 10 MG, QD
     Route: 048
     Dates: start: 20120816, end: 20120819
  10. PAXIL [Concomitant]
     Dosage: 10 MG, QD
     Route: 048
  11. MAGNESIUM OXIDE [Concomitant]
     Dosage: 2 G, PRN
     Route: 048
     Dates: start: 20120801
  12. MUCOSTA [Concomitant]
     Dosage: 100 MG, PRN
     Route: 048
     Dates: start: 20120803
  13. MUCOSTA [Concomitant]
     Dosage: 100 MG, QD
     Route: 048
     Dates: end: 20120812
  14. TAKEPRON [Concomitant]
     Dosage: 15 MG, QD
     Route: 048
     Dates: start: 20120813

REACTIONS (1)
  - Erythema [Recovered/Resolved]
